FAERS Safety Report 13138241 (Version 1)
Quarter: 2017Q1

REPORT INFORMATION
  Report Type: Spontaneous
  Country: US (occurrence: US)
  Receive Date: 20170123
  Receipt Date: 20170123
  Transmission Date: 20170428
  Serious: No
  Sender: FDA-Public Use
  Company Number: US-TEVA-723678ACC

PATIENT
  Sex: Male
  Weight: 56.75 kg

DRUGS (2)
  1. CLARACAP [Suspect]
     Active Substance: ISOTRETINOIN
     Indication: ACNE
     Dosage: 100 MG DAILY
     Dates: start: 201609
  2. CLARACAP [Suspect]
     Active Substance: ISOTRETINOIN
     Dosage: 100 MG DAILY

REACTIONS (2)
  - Depression [Unknown]
  - Product substitution issue [None]
